FAERS Safety Report 18633585 (Version 2)
Quarter: 2021Q1

REPORT INFORMATION
  Report Type: Spontaneous
  Country: FR (occurrence: FR)
  Receive Date: 20201218
  Receipt Date: 20210106
  Transmission Date: 20210419
  Serious: Yes (Hospitalization, Other)
  Sender: FDA-Public Use
  Company Number: FR-PFIZER INC-2020495223

PATIENT
  Age: 78 Year
  Sex: Male
  Weight: 116 kg

DRUGS (15)
  1. PRAVASTATINE [PRAVASTATIN SODIUM] [Suspect]
     Active Substance: PRAVASTATIN SODIUM
     Dosage: 1 DF, DAILY
     Route: 048
     Dates: end: 20201120
  2. OXEOL [Concomitant]
     Active Substance: BAMBUTEROL HYDROCHLORIDE
     Dosage: UNK
  3. LOVENOX [Concomitant]
     Active Substance: ENOXAPARIN SODIUM
     Dosage: UNK
  4. DIFFU K [Suspect]
     Active Substance: POTASSIUM CHLORIDE
     Dosage: 1 DF, DAILY
     Route: 048
     Dates: start: 20201029, end: 20201120
  5. CIFLOX [CIPROFLOXACIN HYDROCHLORIDE] [Suspect]
     Active Substance: CIPROFLOXACIN HYDROCHLORIDE
     Indication: PROSTATITIS
     Dosage: 2 DF, DAILY (1000 MILLIGRAM)
     Route: 048
     Dates: start: 20201109, end: 20201120
  6. ULTRA LEVURE [Concomitant]
     Active Substance: SACCHAROMYCES CEREVISIAE
     Dosage: UNK
  7. ALPRAZOLAM. [Suspect]
     Active Substance: ALPRAZOLAM
     Dosage: 1 DF, DAILY
     Route: 048
     Dates: start: 20201025, end: 20201120
  8. RAMIPRIL. [Suspect]
     Active Substance: RAMIPRIL
     Dosage: 1 DF, DAILY
     Route: 048
     Dates: end: 20201120
  9. PANTOPRAZOLE [Suspect]
     Active Substance: PANTOPRAZOLE
     Dosage: 1 DF, DAILY
     Route: 048
     Dates: end: 20201120
  10. BACLOFEN. [Concomitant]
     Active Substance: BACLOFEN
     Dosage: UNK
  11. ISOPTINE [Concomitant]
     Active Substance: VERAPAMIL HYDROCHLORIDE
     Dosage: UNK
  12. HYDROXYZINE HYDROCHLORIDE. [Concomitant]
     Active Substance: HYDROXYZINE HYDROCHLORIDE
     Dosage: UNK
  13. PRINCI B [PYRIDOXINE HYDROCHLORIDE;THIAMINE MONONITRATE] [Concomitant]
     Active Substance: PYRIDOXINE\THIAMINE
     Dosage: UNK
  14. ESOMEPRAZOL [ESOMEPRAZOLE] [Concomitant]
     Active Substance: ESOMEPRAZOLE
     Dosage: UNK
  15. TAMSULOSINE [TAMSULOSIN] [Concomitant]
     Active Substance: TAMSULOSIN
     Dosage: UNK

REACTIONS (3)
  - Acute kidney injury [Recovering/Resolving]
  - Epilepsy [Recovering/Resolving]
  - Encephalopathy [Recovering/Resolving]

NARRATIVE: CASE EVENT DATE: 20201118
